FAERS Safety Report 4566303-5 (Version None)
Quarter: 2005Q1

REPORT INFORMATION
  Report Type: 
  Country: None (occurrence: None)
  Receive Date: 20050126
  Receipt Date: 20050126
  Transmission Date: 20050727
  Serious: Yes (Death)
  Sender: FDA-Public Use
  Company Number: None

PATIENT
  Sex: Female

DRUGS (10)
  1. METHIMAZOLE [Suspect]
     Dosage: 10 MG  ONCE DAILY  ORAL
     Route: 048
     Dates: start: 20020101, end: 20041104
  2. ALLOPURINOL [Suspect]
     Dosage: 200 MG   ONCE DAILY   ORAL
     Route: 048
     Dates: start: 20020101, end: 20041104
  3. CARBAMAZEPINE [Concomitant]
  4. WARFARIN SODIUM [Concomitant]
  5. PROPRANOLOL HYDROCHLORIDE [Concomitant]
  6. RAMIPRIL [Concomitant]
  7. METOCLOPRAMIDE [Concomitant]
  8. LANSOPRAZOLE [Concomitant]
  9. DIGOXIN [Concomitant]
  10. ISOSORBIDE DINITRATE [Concomitant]

REACTIONS (1)
  - CHOLECYSTITIS [None]
